FAERS Safety Report 14367226 (Version 1)
Quarter: 2018Q1

REPORT INFORMATION
  Report Type: Spontaneous
  Country: US (occurrence: US)
  Receive Date: 20180109
  Receipt Date: 20180109
  Transmission Date: 20180509
  Serious: No
  Sender: FDA-Public Use
  Company Number: US-JNJFOC-20171224098

PATIENT
  Sex: Female

DRUGS (2)
  1. CHILDRENS MOTRIN [Suspect]
     Active Substance: IBUPROFEN
     Indication: PRODUCT USED FOR UNKNOWN INDICATION
     Dosage: DOUBLE DOSAGE
     Route: 048
  2. CHILDRENS MOTRIN [Suspect]
     Active Substance: IBUPROFEN
     Route: 048

REACTIONS (1)
  - Extra dose administered [Unknown]
